FAERS Safety Report 7873885 (Version 4)
Quarter: 2013Q2

REPORT INFORMATION
  Report Type: Spontaneous
  Country: FR (occurrence: FR)
  Receive Date: 20110328
  Receipt Date: 20130415
  Transmission Date: 20140414
  Serious: Yes (Life-Threatening)
  Sender: FDA-Public Use
  Company Number: FR-ASTRAZENECA-2011SE16666

PATIENT
  Age: 13429 Day
  Sex: Female

DRUGS (5)
  1. INEXIUM [Suspect]
     Indication: GASTROOESOPHAGEAL REFLUX DISEASE
     Route: 042
     Dates: start: 20110210, end: 20110224
  2. PROPOFOL [Suspect]
     Indication: PAIN
     Route: 042
     Dates: start: 20110210, end: 20110225
  3. CELOCURINE [Suspect]
     Indication: INDUCTION OF ANAESTHESIA
     Dosage: ONCE/SINGLE ADMINISTRATION
     Route: 042
     Dates: start: 20110210, end: 20110210
  4. TRACRIUM [Suspect]
     Indication: ENDOTRACHEAL INTUBATION
     Route: 042
     Dates: start: 20110210, end: 20110224
  5. LOVENOX [Suspect]
     Indication: THROMBOSIS PROPHYLAXIS
     Route: 058
     Dates: start: 20110210, end: 20110223

REACTIONS (5)
  - Rhabdomyolysis [Recovering/Resolving]
  - Renal failure [Recovering/Resolving]
  - Bronchospasm [Recovered/Resolved with Sequelae]
  - Hepatic enzyme increased [Recovering/Resolving]
  - Rash vesicular [Recovered/Resolved]
